FAERS Safety Report 23602634 (Version 1)
Quarter: 2024Q1

REPORT INFORMATION
  Report Type: Spontaneous
  Country: FR (occurrence: FR)
  Receive Date: 20240306
  Receipt Date: 20240306
  Transmission Date: 20240410
  Serious: Yes (Other)
  Sender: FDA-Public Use
  Company Number: None

PATIENT
  Age: 72 Year
  Sex: Male

DRUGS (1)
  1. ZYCLARA [Suspect]
     Active Substance: IMIQUIMOD
     Indication: Actinic keratosis
     Dosage: 1 APPLICATION PER DAY
     Route: 003
     Dates: start: 20240201, end: 20240211

REACTIONS (5)
  - Hyperkeratosis [Recovering/Resolving]
  - Eyelid oedema [Recovered/Resolved]
  - Application site irritation [Recovering/Resolving]
  - Myalgia [Recovered/Resolved]
  - Asthenia [Recovered/Resolved]

NARRATIVE: CASE EVENT DATE: 20240209
